FAERS Safety Report 24034578 (Version 1)
Quarter: 2024Q3

REPORT INFORMATION
  Report Type: Spontaneous
  Country: US (occurrence: US)
  Receive Date: 20240701
  Receipt Date: 20240701
  Transmission Date: 20241017
  Serious: Yes (Hospitalization, Other)
  Sender: IPCA
  Company Number: US-IPCA LABORATORIES LIMITED-IPC-2024-US-001621

PATIENT

DRUGS (2)
  1. METFORMIN [Suspect]
     Active Substance: METFORMIN HYDROCHLORIDE
     Indication: Product used for unknown indication
     Dosage: 1 GRAM, BID
     Route: 065
  2. SITAGLIPTIN [Concomitant]
     Active Substance: SITAGLIPTIN
     Indication: Product used for unknown indication
     Dosage: 100 MILLIGRAM, QD
     Route: 065

REACTIONS (6)
  - Lactic acidosis [Recovering/Resolving]
  - Cardiac arrest [Recovering/Resolving]
  - Acute kidney injury [Recovering/Resolving]
  - Respiratory distress [Recovering/Resolving]
  - Acidosis [Recovering/Resolving]
  - Electrolyte imbalance [Recovering/Resolving]
